FAERS Safety Report 4503308-4 (Version None)
Quarter: 2004Q4

REPORT INFORMATION
  Report Type: 
  Country: None (occurrence: None)
  Receive Date: 20041112
  Receipt Date: 20041029
  Transmission Date: 20050328
  Serious: Yes (Death, Hospitalization)
  Sender: FDA-Public Use
  Company Number: CERZ-10679

PATIENT
  Age: 58 Year
  Sex: Male
  Weight: 70 kg

DRUGS (5)
  1. CEREZYME [Suspect]
     Indication: GAUCHER'S DISEASE
     Dosage: 4200 UNITS Q2WKS IV
     Route: 042
     Dates: start: 20040805, end: 20040923
  2. LORTAB [Concomitant]
  3. DECADRON [Concomitant]
  4. FUROSEMIDE [Concomitant]
  5. MORPHINE SULFATE [Concomitant]

REACTIONS (31)
  - ANAEMIA [None]
  - ARTHRALGIA [None]
  - ATRIAL FIBRILLATION [None]
  - BLOOD PRESSURE DECREASED [None]
  - BONE PAIN [None]
  - BREATH SOUNDS DECREASED [None]
  - BUNDLE BRANCH BLOCK RIGHT [None]
  - CARDIOPULMONARY FAILURE [None]
  - COMA [None]
  - DEHYDRATION [None]
  - DIABETIC KETOACIDOSIS [None]
  - DISSEMINATED INTRAVASCULAR COAGULATION [None]
  - ELECTROCARDIOGRAM QRS COMPLEX PROLONGED [None]
  - ELECTROCARDIOGRAM ST SEGMENT DEPRESSION [None]
  - HYPERGLYCAEMIA [None]
  - HYPOGLYCAEMIA [None]
  - INFECTION [None]
  - INTERNATIONAL NORMALISED RATIO INCREASED [None]
  - LEUKOCYTOSIS [None]
  - LOBAR PNEUMONIA [None]
  - METABOLIC ACIDOSIS [None]
  - METASTASES TO CENTRAL NERVOUS SYSTEM [None]
  - NON-SMALL CELL LUNG CANCER METASTATIC [None]
  - RESPIRATORY FAILURE [None]
  - SEPSIS [None]
  - SUPRAVENTRICULAR TACHYCARDIA [None]
  - THERAPY NON-RESPONDER [None]
  - THROMBOCYTHAEMIA [None]
  - TROPONIN INCREASED [None]
  - URINARY TRACT INFECTION [None]
  - VENTRICULAR HYPERTROPHY [None]
